FAERS Safety Report 10610003 (Version 1)
Quarter: 2014Q4

REPORT INFORMATION
  Report Type: Spontaneous
  Country: US (occurrence: US)
  Receive Date: 20141126
  Receipt Date: 20141126
  Transmission Date: 20150529
  Serious: No
  Sender: FDA-Public Use
  Company Number: US-SHIRE-US201407685

PATIENT
  Sex: Male

DRUGS (2)
  1. VYVANSE [Suspect]
     Active Substance: LISDEXAMFETAMINE DIMESYLATE
     Dosage: 30 MG, 2X/DAY:BID (ONCE IN THE AM AND ONCE IN THE PM)
  2. VYVANSE [Suspect]
     Active Substance: LISDEXAMFETAMINE DIMESYLATE
     Indication: PRODUCT USED FOR UNKNOWN INDICATION
     Dosage: 70 MG, PER DAY
     Route: 048

REACTIONS (4)
  - Drug effect increased [Recovered/Resolved]
  - Joint stiffness [Unknown]
  - Pain in jaw [Unknown]
  - Inappropriate schedule of drug administration [Not Recovered/Not Resolved]
